FAERS Safety Report 23686601 (Version 1)
Quarter: 2024Q1

REPORT INFORMATION
  Report Type: Spontaneous
  Country: US (occurrence: None)
  Receive Date: 20240328
  Receipt Date: 20240328
  Transmission Date: 20240409
  Serious: Yes (Other)
  Sender: FDA-Public Use
  Company Number: None

PATIENT
  Age: 45 Year
  Sex: Female
  Weight: 70.65 kg

DRUGS (2)
  1. DUPIXENT [Suspect]
     Active Substance: DUPILUMAB
     Indication: Eosinophilic oesophagitis
     Dosage: OTHER FREQUENCY : WEEKLY;?
     Route: 058
     Dates: start: 20230701, end: 20240101
  2. DUPIXENT [Concomitant]
     Active Substance: DUPILUMAB
     Dates: start: 20230702, end: 20240101

REACTIONS (3)
  - Muscle spasms [None]
  - Inflammatory bowel disease [None]
  - Paraesthesia [None]

NARRATIVE: CASE EVENT DATE: 20240101
